FAERS Safety Report 8334440-5 (Version None)
Quarter: 2012Q2

REPORT INFORMATION
  Report Type: 
  Country: None (occurrence: None)
  Receive Date: 20120503
  Receipt Date: 20120220
  Transmission Date: 20120825
  Serious: No
  Sender: FDA-Public Use
  Company Number: US-BAUSCH-2012BL001281

PATIENT
  Age: 56 Year
  Sex: Female

DRUGS (3)
  1. LOTEMAX [Suspect]
     Indication: OFF LABEL USE
     Route: 047
     Dates: start: 20120218, end: 20120218
  2. LOTEMAX [Suspect]
     Indication: DRY EYE
     Route: 047
     Dates: start: 20120218, end: 20120218
  3. LOTEMAX [Suspect]
     Indication: BLEPHARITIS
     Route: 047
     Dates: start: 20120218, end: 20120218

REACTIONS (2)
  - EYE IRRITATION [None]
  - DRUG INEFFECTIVE FOR UNAPPROVED INDICATION [None]
